FAERS Safety Report 8501941-6 (Version None)
Quarter: 2012Q3

REPORT INFORMATION
  Report Type: 
  Country: None (occurrence: None)
  Receive Date: 20120711
  Receipt Date: 20120709
  Transmission Date: 20120928
  Serious: Yes (Life-Threatening, Hospitalization, Disabling, Other)
  Sender: FDA-Public Use
  Company Number: PHFR2011GB01334

PATIENT
  Sex: Male

DRUGS (15)
  1. CLOZARIL [Suspect]
     Indication: SCHIZOPHRENIA
     Dosage: 550 MG, QD
     Route: 048
     Dates: start: 19970417
  2. NYSTATIN [Concomitant]
     Dosage: 1 DF, QD
     Route: 061
  3. LANSOPRAZOLE [Concomitant]
     Dosage: 30 MG, DAILY
     Route: 048
  4. ACETAMINOPHEN [Concomitant]
     Dosage: 1 G, DAILY
     Route: 048
  5. PRAVASTATIN [Concomitant]
     Indication: BLOOD CHOLESTEROL INCREASED
     Dosage: 40 MG, QD
     Route: 048
  6. RANITIDINE [Concomitant]
     Dosage: 150 MG, DAILY
     Route: 048
  7. METFORMIN HCL [Concomitant]
     Dosage: 500 MG, DAILY
     Route: 048
  8. GEVITY [Concomitant]
  9. CLOZARIL [Suspect]
     Dosage: 400 MG, DAILY
     Route: 048
  10. LISINOPRIL [Concomitant]
     Dosage: 10 MG, DAILY
     Route: 048
  11. FRESUBIN [Concomitant]
     Dosage: 1 DF, QD
     Route: 048
  12. MUGARD [Concomitant]
     Dosage: 40 ML, DAILY
     Route: 048
  13. METOCLOPRAMIDE [Concomitant]
     Dosage: 30 MG, DAILY
     Route: 048
  14. LACTOSE [Concomitant]
     Dosage: 20 ML, DAILY
     Route: 048
  15. ONDANSETRON [Concomitant]
     Dosage: 8 MG, DAILY
     Route: 048

REACTIONS (1)
  - SQUAMOUS CELL CARCINOMA [None]
